FAERS Safety Report 10668524 (Version 2)
Quarter: 2015Q1

REPORT INFORMATION
  Report Type: Spontaneous
  Country: JP (occurrence: JP)
  Receive Date: 20141222
  Receipt Date: 20150115
  Transmission Date: 20150720
  Serious: Yes (Disabling, Other)
  Sender: FDA-Public Use
  Company Number: JP-MYLANLABS-2014M1013883

PATIENT

DRUGS (1)
  1. PREDNISOLONE. [Suspect]
     Active Substance: PREDNISOLONE
     Indication: PEMPHIGOID
     Dosage: 30 MG, UNK
     Route: 048
     Dates: start: 2009

REACTIONS (3)
  - VIIth nerve paralysis [Recovered/Resolved]
  - Deafness neurosensory [Not Recovered/Not Resolved]
  - Ear tuberculosis [Recovered/Resolved with Sequelae]
